FAERS Safety Report 15555314 (Version 1)
Quarter: 2018Q4

REPORT INFORMATION
  Report Type: Spontaneous
  Country: BE (occurrence: BE)
  Receive Date: 20181026
  Receipt Date: 20181026
  Transmission Date: 20190205
  Serious: Yes (Hospitalization, Other)
  Sender: FDA-Public Use
  Company Number: BE-ASTELLAS-2018US044840

PATIENT
  Age: 70 Year
  Sex: Male

DRUGS (1)
  1. PROGRAFT [Suspect]
     Active Substance: TACROLIMUS
     Indication: LIVER TRANSPLANT
     Dosage: UNK UNK, UNKNOWN FREQ.
     Route: 065
     Dates: start: 20180730

REACTIONS (2)
  - Ascites [Recovering/Resolving]
  - Budd-Chiari syndrome [Unknown]
